FAERS Safety Report 9199975 (Version 1)
Quarter: 2013Q1

REPORT INFORMATION
  Report Type: Spontaneous
  Country: FR (occurrence: FR)
  Receive Date: 20130329
  Receipt Date: 20130329
  Transmission Date: 20140127
  Serious: Yes (Hospitalization)
  Sender: FDA-Public Use
  Company Number: FR-PFIZER INC-2013100692

PATIENT
  Age: 33 Year
  Sex: Male

DRUGS (3)
  1. EUPANTOL [Suspect]
     Dosage: 40 MG, DAILY
     Route: 042
     Dates: start: 20130107, end: 20130128
  2. LOVENOX [Concomitant]
     Dosage: 4000 IU, UNK
     Dates: start: 20130114
  3. COLIMYCINE [Concomitant]
     Dosage: UNK
     Route: 042
     Dates: start: 20130125, end: 20130129

REACTIONS (1)
  - Agranulocytosis [Recovered/Resolved]
